FAERS Safety Report 17483726 (Version 1)
Quarter: 2020Q1

REPORT INFORMATION
  Report Type: Spontaneous
  Country: CH (occurrence: CH)
  Receive Date: 20200302
  Receipt Date: 20200302
  Transmission Date: 20200409
  Serious: Yes (Other)
  Sender: FDA-Public Use
  Company Number: NVSC2020CH048712

PATIENT
  Sex: Female

DRUGS (1)
  1. LETROZOLE. [Suspect]
     Active Substance: LETROZOLE
     Indication: PRODUCT USED FOR UNKNOWN INDICATION
     Route: 065

REACTIONS (6)
  - Pain [Recovered/Resolved]
  - Insomnia [Unknown]
  - Bone pain [Recovered/Resolved]
  - Neuralgia [Recovered/Resolved]
  - Impaired quality of life [Unknown]
  - Muscular weakness [Recovered/Resolved]
